FAERS Safety Report 19811339 (Version 5)
Quarter: 2022Q1

REPORT INFORMATION
  Report Type: Spontaneous
  Country: US (occurrence: US)
  Receive Date: 20210909
  Receipt Date: 20220309
  Transmission Date: 20220423
  Serious: Yes (Other)
  Sender: FDA-Public Use
  Company Number: US-AMGEN-USASP2021138875

PATIENT

DRUGS (2)
  1. ROMIPLOSTIM [Suspect]
     Active Substance: ROMIPLOSTIM
     Indication: Immune thrombocytopenia
     Dosage: UNK
     Route: 065
  2. RITUXIMAB [Suspect]
     Active Substance: RITUXIMAB
     Indication: Autoimmune haemolytic anaemia
     Dosage: UNK
     Route: 065

REACTIONS (5)
  - Embolism venous [Unknown]
  - Off label use [Unknown]
  - Drug ineffective [Unknown]
  - Arthralgia [Unknown]
  - Musculoskeletal pain [Unknown]
